FAERS Safety Report 9131316 (Version 1)
Quarter: 2013Q1

REPORT INFORMATION
  Report Type: Spontaneous
  Country: ES (occurrence: ES)
  Receive Date: 20130301
  Receipt Date: 20130301
  Transmission Date: 20140127
  Serious: Yes (Hospitalization)
  Sender: FDA-Public Use
  Company Number: ES-JNJFOC-20130300392

PATIENT
  Age: 77 Year
  Sex: Female

DRUGS (1)
  1. REMICADE [Suspect]
     Indication: RHEUMATOID ARTHRITIS
     Dosage: INFLIFLIXIMAB, RECOMBINANT 100 MG
     Route: 042
     Dates: start: 20080728, end: 20120228

REACTIONS (2)
  - Mitral valve incompetence [Unknown]
  - Systolic dysfunction [Unknown]
